FAERS Safety Report 8338274-7 (Version None)
Quarter: 2012Q2

REPORT INFORMATION
  Report Type: 
  Country: None (occurrence: None)
  Receive Date: 20120504
  Receipt Date: 20120424
  Transmission Date: 20120825
  Serious: Yes (Disabling)
  Sender: FDA-Public Use
  Company Number: US-MERCK-98120342

PATIENT
  Age: 48 Year
  Sex: Male

DRUGS (5)
  1. VITAMIN E [Concomitant]
     Route: 065
  2. GARLIC EXTRACT [Concomitant]
     Route: 065
  3. PROPECIA [Suspect]
     Indication: ANDROGENETIC ALOPECIA
     Route: 048
     Dates: start: 19980915, end: 19981203
  4. ZOCOR [Concomitant]
     Indication: HYPERCHOLESTEROLAEMIA
     Route: 065
  5. VITAMINS [Concomitant]
     Route: 065

REACTIONS (8)
  - EJACULATION DISORDER [None]
  - LIBIDO DECREASED [None]
  - ANXIETY [None]
  - COGNITIVE DISORDER [None]
  - EJACULATION FAILURE [None]
  - ERECTILE DYSFUNCTION [None]
  - SEXUAL DYSFUNCTION [None]
  - DEPRESSION [None]
